FAERS Safety Report 4526616-X (Version None)
Quarter: 2004Q4

REPORT INFORMATION
  Report Type: 
  Country: None (occurrence: None)
  Receive Date: 20041213
  Receipt Date: 20041206
  Transmission Date: 20050328
  Serious: Yes (Death)
  Sender: FDA-Public Use
  Company Number: 163-20785-04110323

PATIENT
  Age: 63 Year
  Sex: Male

DRUGS (6)
  1. THALOMID [Suspect]
     Indication: MULTIPLE MYELOMA
     Dosage: 100 MG, QD, ORAL
     Route: 048
     Dates: start: 20040412, end: 20041007
  2. GEMZAR 9GEMCITABINE HYDROCHLORIDE) [Concomitant]
  3. AVASTIN [Concomitant]
  4. OXALIPLATIN (OXALIPLATIN ) [Concomitant]
  5. PROCRIT (ERYTHROPOIETIN) [Concomitant]
  6. NEULASTA [Concomitant]

REACTIONS (7)
  - CATHETER RELATED INFECTION [None]
  - DIALYSIS [None]
  - LEUKAEMIA PLASMACYTIC [None]
  - MALIGNANT NEOPLASM PROGRESSION [None]
  - MULTIPLE MYELOMA [None]
  - RENAL FAILURE [None]
  - SEPSIS [None]
